FAERS Safety Report 9708519 (Version 2)
Quarter: 2013Q4

REPORT INFORMATION
  Report Type: Report from Study
  Country: IT (occurrence: IT)
  Receive Date: 20131125
  Receipt Date: 20131231
  Transmission Date: 20140711
  Serious: Yes (Death)
  Sender: FDA-Public Use
  Company Number: IT-ALEXION PHARMACEUTICALS INC.-A201303771

PATIENT
  Sex: Female

DRUGS (1)
  1. SOLIRIS [Suspect]
     Indication: OFF LABEL USE
     Dosage: 900 MG, SINGLE
     Route: 042
     Dates: start: 20131116, end: 20131116

REACTIONS (2)
  - Death [Fatal]
  - Off label use [Unknown]
